FAERS Safety Report 5759218-8 (Version None)
Quarter: 2008Q2

REPORT INFORMATION
  Report Type: 
  Country: None (occurrence: None)
  Receive Date: 20080604
  Receipt Date: 20080523
  Transmission Date: 20081010
  Serious: Yes (Other)
  Sender: FDA-Public Use
  Company Number: US-PFIZER INC-2008044849

PATIENT
  Sex: Female
  Weight: 90.909 kg

DRUGS (6)
  1. CHANTIX [Suspect]
     Indication: SMOKING CESSATION THERAPY
     Dates: start: 20080305, end: 20080501
  2. PROGESTERONE [Concomitant]
  3. ESTROGENIC SUBSTANCE [Concomitant]
  4. PRILOSEC [Concomitant]
  5. VICODIN [Concomitant]
     Indication: MUSCLE STRAIN
  6. MUSCLE RELAXANTS [Concomitant]

REACTIONS (8)
  - DEPRESSION [None]
  - DYSGEUSIA [None]
  - HALLUCINATION, AUDITORY [None]
  - HEAD DISCOMFORT [None]
  - MALAISE [None]
  - PAROSMIA [None]
  - PSYCHOTIC DISORDER [None]
  - SUICIDAL IDEATION [None]
